FAERS Safety Report 5715312-9 (Version None)
Quarter: 2008Q2

REPORT INFORMATION
  Report Type: 
  Country: None (occurrence: None)
  Receive Date: 20080423
  Receipt Date: 20080411
  Transmission Date: 20081010
  Serious: Yes (Other)
  Sender: FDA-Public Use
  Company Number: CA-PFIZER INC-2008028938

PATIENT
  Age: 51 Year
  Sex: Female

DRUGS (1)
  1. CHAMPIX [Suspect]
     Route: 048

REACTIONS (6)
  - AGGRESSION [None]
  - CONSTIPATION [None]
  - HEADACHE [None]
  - INSOMNIA [None]
  - VIOLENCE-RELATED SYMPTOM [None]
  - WITHDRAWAL SYNDROME [None]
